FAERS Safety Report 12546900 (Version 1)
Quarter: 2016Q3

REPORT INFORMATION
  Report Type: Not Available
  Country: None (occurrence: US)
  Receive Date: 20160711
  Receipt Date: 20160711
  Transmission Date: 20161109
  Serious: Yes (Hospitalization)
  Sender: FDA-Public Use
  Company Number: GB-AKORN-34436

PATIENT
  Age: 77 Year

DRUGS (1)
  1. COSOPT [Suspect]
     Active Substance: DORZOLAMIDE HYDROCHLORIDE\TIMOLOL MALEATE

REACTIONS (4)
  - Bradycardia [Recovered/Resolved]
  - Hypotension [Unknown]
  - Hypovolaemia [None]
  - Hyponatraemia [Recovered/Resolved]
